FAERS Safety Report 4321595-2 (Version None)
Quarter: 2004Q1

REPORT INFORMATION
  Report Type: 
  Country: None (occurrence: None)
  Receive Date: 20040322
  Receipt Date: 20040322
  Transmission Date: 20041129
  Serious: Yes (Death)
  Sender: FDA-Public Use
  Company Number: None

PATIENT
  Sex: Male

DRUGS (1)
  1. CEFTRIAXONE [Suspect]
     Indication: PNEUMONIA
     Dosage: 1 GM IVPB QD
     Route: 040
     Dates: start: 20040208

REACTIONS (2)
  - ANAPHYLACTOID REACTION [None]
  - CARDIO-RESPIRATORY ARREST [None]
